FAERS Safety Report 8227303-7 (Version None)
Quarter: 2012Q1

REPORT INFORMATION
  Report Type: 
  Country: None (occurrence: None)
  Receive Date: 20120322
  Receipt Date: 20120320
  Transmission Date: 20120608
  Serious: Yes (Other)
  Sender: FDA-Public Use
  Company Number: PHHY2012AR024610

PATIENT
  Sex: Male

DRUGS (1)
  1. TRILEPTAL [Suspect]
     Indication: ESSENTIAL TREMOR
     Dosage: 300 MG, DAILY
     Route: 048
     Dates: start: 20111201, end: 20120201

REACTIONS (2)
  - BENIGN PROSTATIC HYPERPLASIA [None]
  - URINARY INCONTINENCE [None]
